FAERS Safety Report 14108127 (Version 1)
Quarter: 2017Q4

REPORT INFORMATION
  Report Type: Spontaneous
  Country: US (occurrence: US)
  Receive Date: 20171019
  Receipt Date: 20171019
  Transmission Date: 20180321
  Serious: Yes (Hospitalization, Other)
  Sender: FDA-Public Use
  Company Number: US-UPSHER-SMITH LABORATORIES, INC.-2017USL00253

PATIENT
  Sex: Female

DRUGS (2)
  1. AMIODARONE HYDROCHLORIDE. [Suspect]
     Active Substance: AMIODARONE HYDROCHLORIDE
     Indication: ATRIAL FIBRILLATION
     Dosage: UNK
     Route: 048
     Dates: start: 201503, end: 2015
  2. AMIODARONE HYDROCHLORIDE (TEVA) [Suspect]
     Active Substance: AMIODARONE HYDROCHLORIDE
     Indication: ATRIAL FIBRILLATION
     Dosage: UNK
     Route: 048
     Dates: start: 201503, end: 2015

REACTIONS (25)
  - Fear [Unknown]
  - Ageusia [Unknown]
  - Anger [Unknown]
  - Fatigue [Unknown]
  - Toxicity to various agents [Unknown]
  - Dyspnoea [Unknown]
  - Contusion [Unknown]
  - Disturbance in attention [Unknown]
  - Skin lesion [Unknown]
  - Liver disorder [Unknown]
  - Confusional state [Unknown]
  - Lung infiltration [Unknown]
  - Hypertension [Unknown]
  - Depression [Unknown]
  - Amnesia [Unknown]
  - Heart rate increased [Unknown]
  - Headache [Unknown]
  - Weight decreased [Unknown]
  - Haemorrhage [Unknown]
  - Off label use [Recovered/Resolved]
  - Balance disorder [Unknown]
  - Asthenia [Unknown]
  - Oedema [Unknown]
  - Decreased appetite [Unknown]
  - Parosmia [Unknown]

NARRATIVE: CASE EVENT DATE: 201503
